FAERS Safety Report 13687163 (Version 1)
Quarter: 2017Q2

REPORT INFORMATION
  Report Type: Report from Study
  Country: US (occurrence: US)
  Receive Date: 20170623
  Receipt Date: 20170623
  Transmission Date: 20170830
  Serious: Yes (Hospitalization)
  Sender: FDA-Public Use
  Company Number: US-ACTELION-A-NJ2017-155675

PATIENT
  Age: 51 Year
  Sex: Female
  Weight: 117.1 kg

DRUGS (2)
  1. FLOLAN [Concomitant]
     Active Substance: EPOPROSTENOL SODIUM
  2. VELETRI [Suspect]
     Active Substance: EPOPROSTENOL
     Indication: PULMONARY ARTERIAL HYPERTENSION
     Dosage: 7 NG/KG, PER MIN
     Route: 042

REACTIONS (4)
  - Depressed level of consciousness [Unknown]
  - Atrioventricular block [Unknown]
  - Syncope [Unknown]
  - Loss of consciousness [Unknown]
